FAERS Safety Report 5569903-9 (Version None)
Quarter: 2007Q4

REPORT INFORMATION
  Report Type: 
  Country: None (occurrence: None)
  Receive Date: 20071217
  Receipt Date: 20071210
  Transmission Date: 20080405
  Serious: Yes (Other)
  Sender: FDA-Public Use
  Company Number: 2007RL000430

PATIENT
  Age: 72 Year
  Sex: Male

DRUGS (3)
  1. LOVAZA [Suspect]
     Indication: BLOOD CHOLESTEROL
     Dosage: 4 GM;QD;PO
     Route: 048
     Dates: start: 20070901, end: 20070921
  2. ZETIA [Concomitant]
  3. ASPIRIN [Concomitant]

REACTIONS (3)
  - CONSTIPATION [None]
  - OFF LABEL USE [None]
  - RECTAL HAEMORRHAGE [None]
